FAERS Safety Report 6528730-6 (Version None)
Quarter: 2010Q1

REPORT INFORMATION
  Report Type: 
  Country: None (occurrence: None)
  Receive Date: 20100106
  Receipt Date: 20091230
  Transmission Date: 20100710
  Serious: Yes (Disabling, Other)
  Sender: FDA-Public Use
  Company Number: US-ALLERGAN-0909659US

PATIENT
  Age: 72 Year
  Sex: Female
  Weight: 70.748 kg

DRUGS (3)
  1. BOTOX [Suspect]
     Indication: BLEPHAROSPASM
     Dosage: 17 UNITS, SINGLE
     Route: 030
     Dates: start: 20090616, end: 20090616
  2. BOTOX [Suspect]
     Indication: PHOTOPHOBIA
  3. ANTIHYPERTENSIVES [Concomitant]

REACTIONS (18)
  - ASTHENIA [None]
  - ASTHENOPIA [None]
  - CHILLS [None]
  - ENTROPION [None]
  - EYE IRRITATION [None]
  - EYELID PTOSIS [None]
  - KERATITIS [None]
  - KERATOPATHY [None]
  - LAGOPHTHALMOS [None]
  - MUSCLE DISORDER [None]
  - MUSCLE INJURY [None]
  - MUSCLE SPASMS [None]
  - NAUSEA [None]
  - OCULAR HYPERAEMIA [None]
  - PHOTOPHOBIA [None]
  - RHINORRHOEA [None]
  - SWELLING [None]
  - VISION BLURRED [None]
